FAERS Safety Report 10040483 (Version 3)
Quarter: 2014Q2

REPORT INFORMATION
  Report Type: Spontaneous
  Country: US (occurrence: US)
  Receive Date: 20140327
  Receipt Date: 20140513
  Transmission Date: 20141212
  Serious: Yes (Hospitalization)
  Sender: FDA-Public Use
  Company Number: US-B.I. PHARMACEUTICALS,INC./RIDGEFIELD-2014-BI-12744BP

PATIENT
  Age: 61 Year
  Sex: Male
  Weight: 87.72 kg

DRUGS (20)
  1. SIMVASTATIN [Concomitant]
     Dosage: 20 MG
     Route: 065
  2. GABAPENTIN [Concomitant]
     Dosage: 1800 MG
     Route: 065
  3. FENOFIBRATE [Concomitant]
     Dosage: 200 MG
     Route: 065
  4. CLOZAPINE [Concomitant]
     Dosage: 300 MG
     Route: 065
  5. AGGRENOX [Suspect]
     Indication: PRODUCT USED FOR UNKNOWN INDICATION
     Dosage: STRENGTH AND DAILY DOSE: 25 MG / 200 MG;
     Route: 048
     Dates: start: 201102
  6. CREON [Concomitant]
     Indication: DYSPEPSIA
     Route: 065
  7. GLIMEPIRIDE [Concomitant]
     Dosage: 0.5 MG
     Route: 065
  8. VENLAFAXINE [Concomitant]
     Dosage: 200 MG
     Route: 065
  9. ATENOLOL [Concomitant]
     Dosage: 50 MG
     Route: 065
  10. NEXIUM [Concomitant]
     Dosage: 40 MG
     Route: 065
  11. IRON [Concomitant]
     Route: 065
  12. FISH OIL [Concomitant]
     Route: 065
  13. PROBIOTIC [Concomitant]
     Route: 065
  14. VITAMIN D3 [Concomitant]
     Route: 065
  15. NIACIN [Concomitant]
     Route: 065
  16. VITAMIN B12 [Concomitant]
     Route: 065
  17. CINNAMON [Concomitant]
     Route: 065
  18. MULTI VITAMIN [Concomitant]
     Route: 065
  19. VITAMIN C [Concomitant]
     Route: 065
  20. MAGNESIUM [Concomitant]
     Route: 065

REACTIONS (2)
  - Cerebrovascular accident [Unknown]
  - Pancreatitis [Unknown]
